FAERS Safety Report 8192782-0 (Version None)
Quarter: 2012Q1

REPORT INFORMATION
  Report Type: 
  Country: None (occurrence: None)
  Receive Date: 20120308
  Receipt Date: 20120305
  Transmission Date: 20120608
  Serious: No
  Sender: FDA-Public Use
  Company Number: US-PFIZER INC-2012058850

PATIENT
  Sex: Female
  Weight: 68.027 kg

DRUGS (2)
  1. PROTONIX [Suspect]
     Indication: ULCER
     Dosage: 40 MG, 2X/DAY
  2. ATENOLOL [Concomitant]
     Indication: BLOOD PRESSURE ABNORMAL
     Dosage: 25 MG, DAILY

REACTIONS (3)
  - GOUT [None]
  - INFECTION [None]
  - WHITE BLOOD CELL COUNT INCREASED [None]
